FAERS Safety Report 4363159-0 (Version None)
Quarter: 2004Q2

REPORT INFORMATION
  Report Type: 
  Country: None (occurrence: None)
  Receive Date: 20040518
  Receipt Date: 20040506
  Transmission Date: 20050107
  Serious: Yes (Hospitalization, Other)
  Sender: FDA-Public Use
  Company Number: DE-JNJFOC-20040306273

PATIENT
  Age: 60 Year
  Sex: Female
  Weight: 130 kg

DRUGS (8)
  1. DOXORUBICIN HCL [Suspect]
     Indication: ENDOMETRIAL CANCER
     Dosage: 84MG X2 CYCLES; 88 MG, INTRAVENOUS
     Route: 042
     Dates: start: 20021113, end: 20031211
  2. DOXORUBICIN HCL [Suspect]
     Indication: ENDOMETRIAL CANCER
     Dosage: 84MG X2 CYCLES; 88 MG, INTRAVENOUS
     Route: 042
     Dates: start: 20040115, end: 20040115
  3. CARBOPLATIN [Suspect]
     Indication: ENDOMETRIAL CANCER
     Dosage: 576 X2 CYCLES; 684 MG, INTRAVENOUS
     Route: 042
     Dates: start: 20031113, end: 20031211
  4. CARBOPLATIN [Suspect]
     Indication: ENDOMETRIAL CANCER
     Dosage: 576 X2 CYCLES; 684 MG, INTRAVENOUS
     Route: 042
     Dates: start: 20040115, end: 20040115
  5. FORTECORTIN (DEXAMETHASONE) TABLETS [Concomitant]
  6. VITAMIN B6 (PYRIDOXINE HYDROCHLORIDE) TABLETS [Concomitant]
  7. BISOPROLOL (BISOLPROL) TABLETS [Concomitant]
  8. AQUAPHOR (AQUAPHOR) TABLETS [Concomitant]

REACTIONS (9)
  - ALANINE AMINOTRANSFERASE INCREASED [None]
  - ASPARTATE AMINOTRANSFERASE INCREASED [None]
  - BLOOD ALKALINE PHOSPHATASE INCREASED [None]
  - BLOOD BILIRUBIN INCREASED [None]
  - C-REACTIVE PROTEIN INCREASED [None]
  - DYSPNOEA [None]
  - GAMMA-GLUTAMYLTRANSFERASE INCREASED [None]
  - HEPATITIS B ANTIBODY POSITIVE [None]
  - PANCREATITIS ACUTE [None]
